FAERS Safety Report 16628284 (Version 2)
Quarter: 2019Q3

REPORT INFORMATION
  Report Type: Report from Study
  Country: GT (occurrence: GT)
  Receive Date: 20190724
  Receipt Date: 20190724
  Transmission Date: 20191004
  Serious: Yes (Other)
  Sender: FDA-Public Use
  Company Number: PHHY2019GT170516

PATIENT
  Age: 68 Year
  Sex: Male

DRUGS (2)
  1. GALVUS MET [Suspect]
     Active Substance: METFORMIN HYDROCHLORIDE\VILDAGLIPTIN
     Indication: PRODUCT USED FOR UNKNOWN INDICATION
     Dosage: (METFORMIN 850 MG, VILDAGLIPTIN 50 MG)
     Route: 065
     Dates: start: 201905
  2. DIOVAN [Suspect]
     Active Substance: VALSARTAN
     Indication: PRODUCT USED FOR UNKNOWN INDICATION
     Dosage: 320 MG, UNK
     Route: 065
     Dates: start: 201905

REACTIONS (2)
  - Visual impairment [Unknown]
  - Diabetes mellitus [Unknown]
